FAERS Safety Report 9110957 (Version 1)
Quarter: 2013Q1

REPORT INFORMATION
  Report Type: Spontaneous
  Country: US (occurrence: US)
  Receive Date: 20130219
  Receipt Date: 20130219
  Transmission Date: 20140127
  Serious: No
  Sender: FDA-Public Use
  Company Number: US-BRISTOL-MYERS SQUIBB COMPANY-16914335

PATIENT
  Age: 71 Year
  Sex: Male

DRUGS (6)
  1. ORENCIA [Suspect]
     Indication: RHEUMATOID ARTHRITIS
     Dosage: LAST INFUSION: 22AUG12.
     Route: 042
     Dates: start: 20081111
  2. PREDNISONE [Concomitant]
  3. PLAQUENIL [Concomitant]
  4. FLOMAX [Concomitant]
  5. LISINOPRIL + HCTZ [Concomitant]
  6. NORVASC [Concomitant]

REACTIONS (2)
  - Local swelling [Unknown]
  - Drug dose omission [Unknown]
